FAERS Safety Report 11793983 (Version 1)
Quarter: 2015Q4

REPORT INFORMATION
  Report Type: Spontaneous
  Country: US (occurrence: None)
  Receive Date: 20151201
  Receipt Date: 20151201
  Transmission Date: 20160305
  Serious: No
  Sender: FDA-Public Use
  Company Number: None

PATIENT
  Age: 60 Year
  Sex: Female
  Weight: 72.58 kg

DRUGS (9)
  1. FISH OIL [Concomitant]
     Active Substance: FISH OIL
  2. ACETOMITIPHAN [Concomitant]
  3. IBUPROFIN [Concomitant]
  4. ALOE VERA GEL [Concomitant]
     Active Substance: ALOE VERA LEAF
  5. LEVOFLOXACIN 500MG TABS GENERIC FOR LEVAQUIN 500 MG TABS [Suspect]
     Active Substance: LEVOFLOXACIN
     Indication: SINUSITIS
     Dosage: 1 PILL DAILY MOUTH
     Route: 048
     Dates: start: 20150910, end: 20150916
  6. DAILY MULTIVITAMIN [Concomitant]
     Active Substance: VITAMINS
  7. CALCIUM [Concomitant]
     Active Substance: CALCIUM
  8. BIOTIN [Concomitant]
     Active Substance: BIOTIN
  9. ACIDOPHILUS [Concomitant]
     Active Substance: LACTOBACILLUS ACIDOPHILUS

REACTIONS (4)
  - Heart rate increased [None]
  - Confusional state [None]
  - Gastrointestinal tract irritation [None]
  - Feeling abnormal [None]

NARRATIVE: CASE EVENT DATE: 201509
